FAERS Safety Report 6689982-5 (Version None)
Quarter: 2010Q2

REPORT INFORMATION
  Report Type: 
  Country: None (occurrence: None)
  Receive Date: 20100421
  Receipt Date: 20100413
  Transmission Date: 20101027
  Serious: Yes (Other)
  Sender: FDA-Public Use
  Company Number: FI-PFIZER INC-2010046121

PATIENT
  Age: 61 Year
  Sex: Female

DRUGS (4)
  1. CHAMPIX [Suspect]
     Indication: SMOKING CESSATION THERAPY
     Dosage: 0.5 MG, 1X/DAY
     Route: 048
     Dates: start: 20100406, end: 20100408
  2. CHAMPIX [Suspect]
     Dosage: 0.5 MG, 2X/DAY
     Route: 048
     Dates: start: 20100409, end: 20100412
  3. CHAMPIX [Suspect]
     Dosage: UNK
     Route: 048
     Dates: start: 20100413
  4. FEMOSTON CONTI [Concomitant]
     Indication: HORMONE REPLACEMENT THERAPY
     Dosage: UNK

REACTIONS (12)
  - ABDOMINAL PAIN UPPER [None]
  - CONSTIPATION [None]
  - COUGH [None]
  - FATIGUE [None]
  - FLANK PAIN [None]
  - HYPERHIDROSIS [None]
  - NAUSEA [None]
  - OCULAR HYPERAEMIA [None]
  - OCULAR ICTERUS [None]
  - POLLAKIURIA [None]
  - SWELLING [None]
  - THIRST [None]
